FAERS Safety Report 12213856 (Version 1)
Quarter: 2016Q1

REPORT INFORMATION
  Report Type: Spontaneous
  Country: US (occurrence: US)
  Receive Date: 20160328
  Receipt Date: 20160328
  Transmission Date: 20160526
  Serious: No
  Sender: FDA-Public Use
  Company Number: US-GLAXOSMITHKLINE-US2016038405

PATIENT
  Age: 72 Year
  Sex: Female

DRUGS (14)
  1. CITALOPRAM [Concomitant]
     Active Substance: CITALOPRAM HYDROBROMIDE
  2. BUDESONIDE. [Concomitant]
     Active Substance: BUDESONIDE
  3. SINGULAIR [Concomitant]
     Active Substance: MONTELUKAST SODIUM
  4. THEOPHYLLINE [Concomitant]
     Active Substance: THEOPHYLLINE ANHYDROUS
  5. ALBUTEROL. [Concomitant]
     Active Substance: ALBUTEROL
  6. OMEPRAZOLE. [Concomitant]
     Active Substance: OMEPRAZOLE
  7. CLONAZEPAM. [Concomitant]
     Active Substance: CLONAZEPAM
  8. PREDNISONE. [Concomitant]
     Active Substance: PREDNISONE
  9. DALIRESP [Concomitant]
     Active Substance: ROFLUMILAST
  10. FLORASTOR [Concomitant]
     Active Substance: SACCHAROMYCES CEREVISIAE
  11. METOPROLOL. [Concomitant]
     Active Substance: METOPROLOL
  12. ZITHROMYCIN [Concomitant]
     Active Substance: AZITHROMYCIN ANHYDROUS
  13. INCRUSE ELLIPTA [Suspect]
     Active Substance: UMECLIDINIUM BROMIDE
     Indication: CHRONIC OBSTRUCTIVE PULMONARY DISEASE
     Dosage: 1 PUFF(S), QD
     Route: 055
     Dates: start: 201602, end: 20160315
  14. MUCINEX [Concomitant]
     Active Substance: GUAIFENESIN

REACTIONS (7)
  - Arthralgia [Recovering/Resolving]
  - Cough [Recovering/Resolving]
  - Pain in extremity [Recovering/Resolving]
  - Dysstasia [Recovering/Resolving]
  - Headache [Recovered/Resolved]
  - Dizziness [Recovered/Resolved]
  - Back pain [Recovering/Resolving]

NARRATIVE: CASE EVENT DATE: 201602
